FAERS Safety Report 20484298 (Version 1)
Quarter: 2022Q1

REPORT INFORMATION
  Report Type: Spontaneous
  Country: US (occurrence: None)
  Receive Date: 20220216
  Receipt Date: 20220216
  Transmission Date: 20220423
  Serious: Yes (unspecified)
  Sender: FDA-Public Use
  Company Number: None

PATIENT
  Age: 37 Year
  Sex: Female
  Weight: 86.85 kg

DRUGS (4)
  1. OZEMPIC [Suspect]
     Active Substance: SEMAGLUTIDE
     Indication: Weight decreased
     Dosage: OTHER QUANTITY : 4 INJECTION(S);?
  2. HUMALOG [Concomitant]
     Active Substance: INSULIN LISPRO
  3. TOPAMAX [Concomitant]
     Active Substance: TOPIRAMATE
  4. IRON [Concomitant]
     Active Substance: IRON

REACTIONS (3)
  - Influenza [None]
  - Euglycaemic diabetic ketoacidosis [None]
  - Product use issue [None]

NARRATIVE: CASE EVENT DATE: 20220215
